FAERS Safety Report 21106205 (Version 2)
Quarter: 2022Q3

REPORT INFORMATION
  Report Type: Spontaneous
  Country: US (occurrence: US)
  Receive Date: 20220720
  Receipt Date: 20220912
  Transmission Date: 20221026
  Serious: No
  Sender: FDA-Public Use
  Company Number: US-PFIZER INC-202200962339

PATIENT
  Age: 70 Year
  Sex: Female
  Weight: 74.84 kg

DRUGS (1)
  1. PAXLOVID [Suspect]
     Active Substance: NIRMATRELVIR\RITONAVIR
     Indication: COVID-19 treatment
     Dosage: UNK (3 TABLETS AT EACH DOSE. 2 OF NIRMATRELVIR AND ONE RITONAVIR)
     Dates: start: 20220701, end: 202207

REACTIONS (4)
  - Dysgeusia [Unknown]
  - Asthma [Unknown]
  - Secretion discharge [Unknown]
  - Therapeutic product effect incomplete [Unknown]

NARRATIVE: CASE EVENT DATE: 20220701
